FAERS Safety Report 21622995 (Version 1)
Quarter: 2022Q4

REPORT INFORMATION
  Report Type: Spontaneous
  Country: TR (occurrence: TR)
  Receive Date: 20221121
  Receipt Date: 20221121
  Transmission Date: 20230113
  Serious: Yes (Other)
  Sender: FDA-Public Use
  Company Number: TR-ABBVIE-4203808

PATIENT
  Age: 45 Year
  Sex: Male
  Weight: 90 kg

DRUGS (2)
  1. HUMIRA [Suspect]
     Active Substance: ADALIMUMAB
     Indication: Hidradenitis
     Dosage: FORM STRENGTH: 40 MILLIGRAM
     Route: 058
     Dates: start: 202205, end: 20221001
  2. HUMIRA [Suspect]
     Active Substance: ADALIMUMAB
     Indication: Lichen planus

REACTIONS (5)
  - Tuberculosis gastrointestinal [Not Recovered/Not Resolved]
  - Abdominal pain [Unknown]
  - Off label use [Recovered/Resolved]
  - Peripheral swelling [Not Recovered/Not Resolved]
  - Erythema [Not Recovered/Not Resolved]

NARRATIVE: CASE EVENT DATE: 20220501
